FAERS Safety Report 15014362 (Version 2)
Quarter: 2018Q2

REPORT INFORMATION
  Report Type: Spontaneous
  Country: RU (occurrence: RU)
  Receive Date: 20180615
  Receipt Date: 20180626
  Transmission Date: 20180711
  Serious: Yes (Death, Hospitalization, Other)
  Sender: FDA-Public Use
  Company Number: RU-ASTRAZENECA-2018SE04125

PATIENT
  Age: 65 Year
  Sex: Female
  Weight: 73 kg

DRUGS (12)
  1. METFORMIN [Concomitant]
     Active Substance: METFORMIN HYDROCHLORIDE
  2. ZOCARDIS [Concomitant]
  3. DE-NOL [Concomitant]
  4. GLICLAZIDE [Concomitant]
     Active Substance: GLICLAZIDE
  5. OMEPRAZOL [Concomitant]
     Active Substance: OMEPRAZOLE
  6. THROMBO ASS [Concomitant]
     Active Substance: ASPIRIN
  7. GAVISCON [Concomitant]
     Active Substance: ALUMINUM HYDROXIDE\MAGNESIUM CARBONATE
  8. BISOPROLOL [Concomitant]
     Active Substance: BISOPROLOL
  9. LIPRIMAR [Concomitant]
     Active Substance: ATORVASTATIN CALCIUM
  10. VEROSPIRON [Concomitant]
     Active Substance: SPIRONOLACTONE
  11. BRILINTA [Suspect]
     Active Substance: TICAGRELOR
     Indication: MYOCARDIAL INFARCTION
     Route: 048
     Dates: start: 201709
  12. LIPRIMAR [Concomitant]
     Active Substance: ATORVASTATIN CALCIUM

REACTIONS (7)
  - Dyspnoea [Not Recovered/Not Resolved]
  - Myocardial infarction [Unknown]
  - Abdominal pain upper [Unknown]
  - Death [Fatal]
  - Arthralgia [Not Recovered/Not Resolved]
  - Gastric ulcer [Not Recovered/Not Resolved]
  - Visual impairment [Not Recovered/Not Resolved]

NARRATIVE: CASE EVENT DATE: 201710
